FAERS Safety Report 6338840-4 (Version None)
Quarter: 2009Q3

REPORT INFORMATION
  Report Type: 
  Country: None (occurrence: None)
  Receive Date: 20090827
  Receipt Date: 20090717
  Transmission Date: 20100115
  Serious: Yes (Life-Threatening, Hospitalization, Disabling, Other)
  Sender: FDA-Public Use
  Company Number: WAES 0610USA07309

PATIENT
  Age: 72 Year
  Sex: Male
  Weight: 71.6683 kg

DRUGS (13)
  1. ZOCOR [Suspect]
     Indication: HYPERLIPIDAEMIA
     Dosage: 80 MG/HS/PO
     Route: 048
     Dates: start: 20060801, end: 20060828
  2. AMIODARONE HCL [Suspect]
     Dosage: 200 MG/DAILY; 400 MG/DAILY
     Dates: start: 20060809
  3. ATAZANAVIR [Suspect]
     Indication: HIV INFECTION
     Dosage: 400 MG/HS
     Dates: start: 20061017
  4. GLYCOLAX [Concomitant]
  5. PLAVIX [Concomitant]
  6. ASPIRIN [Concomitant]
  7. DELAVIRDINE MESYLATE [Concomitant]
  8. DOCUSATE SODIUM [Concomitant]
  9. FAMOTIDINE [Concomitant]
  10. ISOSORBIDE MONONITRATE [Concomitant]
  11. METOPROLOL TARTRATE [Concomitant]
  12. STAVUDINE [Concomitant]
  13. TERAZOSIN HYDROCHLORIDE [Concomitant]

REACTIONS (3)
  - DRUG INTERACTION [None]
  - RENAL FAILURE ACUTE [None]
  - RHABDOMYOLYSIS [None]
